FAERS Safety Report 5786803-X (Version None)
Quarter: 2008Q2

REPORT INFORMATION
  Report Type: 
  Country: None (occurrence: None)
  Receive Date: 20080620
  Receipt Date: 20080609
  Transmission Date: 20081010
  Serious: Yes (Other)
  Sender: FDA-Public Use
  Company Number: B0525336A

PATIENT
  Age: 14 Year
  Sex: Female

DRUGS (3)
  1. LAMOTRIGINE [Suspect]
     Dosage: 25 MG / ALTERNATE DAYS /
  2. VALPROIC ACID [Suspect]
  3. AMITRIPTYLINE HCL [Concomitant]

REACTIONS (9)
  - ARTHRALGIA [None]
  - ERYTHEMA INFECTIOSUM [None]
  - EYE ROLLING [None]
  - FEAR [None]
  - HALLUCINATION, AUDITORY [None]
  - HALLUCINATION, VISUAL [None]
  - HEAD INJURY [None]
  - PYREXIA [None]
  - STARING [None]
